FAERS Safety Report 7386951-7 (Version None)
Quarter: 2011Q1

REPORT INFORMATION
  Report Type: 
  Country: None (occurrence: None)
  Receive Date: 20110331
  Receipt Date: 20110325
  Transmission Date: 20110831
  Serious: Yes (Hospitalization)
  Sender: FDA-Public Use
  Company Number: KR-PFIZER INC-2011067847

PATIENT
  Age: 46 Year
  Sex: Male
  Weight: 72 kg

DRUGS (2)
  1. DOCETAXEL [Suspect]
     Indication: GASTRIC CANCER
     Dosage: 80 MG, EVERY 3 WEEKS
     Dates: start: 20101101, end: 20110314
  2. SUNITINIB MALATE [Suspect]
     Indication: GASTRIC CANCER
     Dosage: 25 MG, 1X/DAY
     Dates: start: 20101101, end: 20110323

REACTIONS (1)
  - ABDOMINAL ABSCESS [None]
